FAERS Safety Report 18998154 (Version 2)
Quarter: 2021Q2

REPORT INFORMATION
  Report Type: Report from Study
  Country: US (occurrence: US)
  Receive Date: 20210311
  Receipt Date: 20210405
  Transmission Date: 20210717
  Serious: Yes (Other)
  Sender: FDA-Public Use
  Company Number: US-BIOGEN-2021BI00987377

PATIENT
  Sex: Male

DRUGS (3)
  1. METH (METHAMPHETAMINE) [Suspect]
     Active Substance: METHAMPHETAMINE HYDROCHLORIDE
     Indication: PRODUCT USED FOR UNKNOWN INDICATION
     Route: 065
  2. VUMERITY [Suspect]
     Active Substance: DIROXIMEL FUMARATE
     Indication: MULTIPLE SCLEROSIS
     Route: 048
  3. VUMERITY [Suspect]
     Active Substance: DIROXIMEL FUMARATE
     Route: 048
     Dates: start: 20210113

REACTIONS (5)
  - Drug abuse [Unknown]
  - Gait disturbance [Unknown]
  - Agitation [Not Recovered/Not Resolved]
  - Yellow skin [Not Recovered/Not Resolved]
  - Musculoskeletal disorder [Unknown]
